FAERS Safety Report 10286910 (Version 16)
Quarter: 2018Q4

REPORT INFORMATION
  Report Type: Report from Study
  Country: US (occurrence: US)
  Receive Date: 20140709
  Receipt Date: 20181113
  Transmission Date: 20190204
  Serious: Yes (Hospitalization, Disabling, Other)
  Sender: FDA-Public Use
  Company Number: US-SANOFI-AVENTIS-2013SA071096

PATIENT
  Age: 60 Year
  Sex: Female
  Weight: 56.24 kg

DRUGS (18)
  1. TERIFLUNOMIDE. [Suspect]
     Active Substance: TERIFLUNOMIDE
     Dosage: 7 MG,QD
     Route: 048
     Dates: start: 20130714, end: 20130721
  2. TERIFLUNOMIDE. [Suspect]
     Active Substance: TERIFLUNOMIDE
     Dosage: 14 MG,QD
     Route: 048
  3. OXCARBAZEPINE. [Concomitant]
     Active Substance: OXCARBAZEPINE
     Dosage: UNK UNK,TID
     Route: 065
     Dates: start: 2008
  4. CLORAZEPATE [Concomitant]
     Active Substance: CLORAZEPATE DIPOTASSIUM
     Indication: NERVOUSNESS
     Dosage: 15 MG,4X
     Route: 065
  5. LOVASTATIN. [Concomitant]
     Active Substance: LOVASTATIN
     Indication: BLOOD CHOLESTEROL
     Dosage: 40 MG,BID
     Route: 065
     Dates: start: 2011
  6. TRILEPTAL [Concomitant]
     Active Substance: OXCARBAZEPINE
     Dosage: UNK
  7. TERIFLUNOMIDE. [Suspect]
     Active Substance: TERIFLUNOMIDE
     Dosage: 14 MG,QD
     Route: 048
     Dates: start: 20160731
  8. METOPROLOL. [Concomitant]
     Active Substance: METOPROLOL
     Indication: CARDIAC DISORDER
     Dosage: 25 MG,QD
     Route: 065
     Dates: start: 2010
  9. TERIFLUNOMIDE. [Suspect]
     Active Substance: TERIFLUNOMIDE
     Indication: MULTIPLE SCLEROSIS
     Dosage: 14 MG,QD
     Route: 048
     Dates: start: 20130629
  10. TERIFLUNOMIDE. [Suspect]
     Active Substance: TERIFLUNOMIDE
     Dosage: 14 MG,QD
     Route: 048
     Dates: start: 20130629
  11. TERIFLUNOMIDE. [Suspect]
     Active Substance: TERIFLUNOMIDE
     Dosage: 7 MG,QD
     Route: 048
     Dates: start: 20130711
  12. TERIFLUNOMIDE. [Suspect]
     Active Substance: TERIFLUNOMIDE
     Dosage: 14 MG,UNK
     Route: 048
     Dates: end: 20170721
  13. METOPROLOL. [Concomitant]
     Active Substance: METOPROLOL
     Dosage: 12.5 MG,PRN
     Route: 065
  14. AMITIZA [Concomitant]
     Active Substance: LUBIPROSTONE
     Indication: FUNCTIONAL GASTROINTESTINAL DISORDER
     Dosage: 8 UG,BID
     Route: 065
     Dates: start: 1990
  15. CLOPIDOGREL BISULFATE. [Concomitant]
     Active Substance: CLOPIDOGREL BISULFATE
     Indication: CARDIAC DISORDER
     Dosage: 75 MG,QD
     Route: 065
     Dates: start: 2011
  16. TERIFLUNOMIDE. [Suspect]
     Active Substance: TERIFLUNOMIDE
     Dosage: 14 MG,QD
     Route: 048
     Dates: start: 20161011, end: 20161220
  17. TERIFLUNOMIDE. [Suspect]
     Active Substance: TERIFLUNOMIDE
     Dosage: 14 MG,QD
     Route: 048
  18. AMITRIPTYLINE [Concomitant]
     Active Substance: AMITRIPTYLINE
     Indication: DEPRESSION
     Dosage: 25 MG,QD
     Route: 065

REACTIONS (110)
  - Clostridium difficile infection [Recovered/Resolved]
  - Wheelchair user [Not Recovered/Not Resolved]
  - Anxiety [Not Recovered/Not Resolved]
  - Dry skin [Unknown]
  - Paraesthesia [Unknown]
  - Diarrhoea [Unknown]
  - Nausea [Not Recovered/Not Resolved]
  - Liver function test abnormal [Recovered/Resolved]
  - Condition aggravated [Unknown]
  - Fall [Not Recovered/Not Resolved]
  - Head injury [Unknown]
  - Pain [Not Recovered/Not Resolved]
  - Dysuria [Not Recovered/Not Resolved]
  - Gait disturbance [Not Recovered/Not Resolved]
  - Blood sodium decreased [Not Recovered/Not Resolved]
  - Burning sensation [Recovered/Resolved]
  - Temperature intolerance [Unknown]
  - Dysphagia [Unknown]
  - Micturition urgency [Not Recovered/Not Resolved]
  - Eye pain [Recovered/Resolved]
  - Headache [Unknown]
  - Vomiting [Unknown]
  - Constipation [Not Recovered/Not Resolved]
  - Liver disorder [Unknown]
  - Insomnia [Not Recovered/Not Resolved]
  - Balance disorder [Not Recovered/Not Resolved]
  - Gastrointestinal disorder [Unknown]
  - Trigeminal neuralgia [Unknown]
  - Neuralgia [Unknown]
  - Gait disturbance [Unknown]
  - Gastritis [Not Recovered/Not Resolved]
  - Visual impairment [Not Recovered/Not Resolved]
  - Stress [Not Recovered/Not Resolved]
  - Paraesthesia [Not Recovered/Not Resolved]
  - Gingival bleeding [Not Recovered/Not Resolved]
  - Angina pectoris [Unknown]
  - Panic attack [Unknown]
  - Walking aid user [Not Recovered/Not Resolved]
  - Pruritus generalised [Recovering/Resolving]
  - Palpitations [Unknown]
  - Arthralgia [Recovered/Resolved]
  - Neuropathy peripheral [Recovering/Resolving]
  - Chromaturia [Not Recovered/Not Resolved]
  - Grip strength decreased [Unknown]
  - Sensitivity of teeth [Unknown]
  - Amnesia [Unknown]
  - Cough [Unknown]
  - Sensory loss [Unknown]
  - Nervous system disorder [Not Recovered/Not Resolved]
  - Cardiovascular disorder [Not Recovered/Not Resolved]
  - Eye pain [Not Recovered/Not Resolved]
  - Eye disorder [Not Recovered/Not Resolved]
  - Myalgia [Not Recovered/Not Resolved]
  - Dysgraphia [Not Recovered/Not Resolved]
  - Dizziness [Unknown]
  - Fatigue [Unknown]
  - Heart rate decreased [Unknown]
  - Sensory disturbance [Unknown]
  - Alopecia [Not Recovered/Not Resolved]
  - Pain in jaw [Recovered/Resolved]
  - Arthropathy [Unknown]
  - Abnormal faeces [Unknown]
  - Rash erythematous [Not Recovered/Not Resolved]
  - Dysarthria [Unknown]
  - Blood pressure increased [Recovered/Resolved]
  - Intentional dose omission [Unknown]
  - Wrong technique in product usage process [Unknown]
  - Altered visual depth perception [Not Recovered/Not Resolved]
  - Vascular occlusion [Unknown]
  - Pain [Recovered/Resolved]
  - Abdominal distension [Not Recovered/Not Resolved]
  - Eructation [Not Recovered/Not Resolved]
  - Vitreous floaters [Not Recovered/Not Resolved]
  - Depressed mood [Unknown]
  - Dyspnoea [Unknown]
  - Micturition disorder [Unknown]
  - Facial pain [Not Recovered/Not Resolved]
  - Weight decreased [Unknown]
  - Urinary tract infection [Not Recovered/Not Resolved]
  - Pollakiuria [Not Recovered/Not Resolved]
  - Condition aggravated [Not Recovered/Not Resolved]
  - Hypertension [Not Recovered/Not Resolved]
  - Mobility decreased [Unknown]
  - Trigeminal nerve disorder [Unknown]
  - Memory impairment [Not Recovered/Not Resolved]
  - Arthropod bite [Not Recovered/Not Resolved]
  - Tendonitis [Unknown]
  - Chest pain [Recovered/Resolved]
  - Urine odour abnormal [Unknown]
  - Faeces discoloured [Unknown]
  - Injury associated with device [Unknown]
  - Speech disorder [Unknown]
  - Multiple allergies [Not Recovered/Not Resolved]
  - Eye movement disorder [Not Recovered/Not Resolved]
  - Nystagmus [Not Recovered/Not Resolved]
  - Pain in extremity [Not Recovered/Not Resolved]
  - Motor dysfunction [Not Recovered/Not Resolved]
  - Asthenia [Recovered/Resolved]
  - Sleep disorder [Not Recovered/Not Resolved]
  - Incontinence [Unknown]
  - Visual impairment [Not Recovered/Not Resolved]
  - Product dose omission [Unknown]
  - Muscular weakness [Recovering/Resolving]
  - Hypoaesthesia [Unknown]
  - Anger [Unknown]
  - Blood urine present [Unknown]
  - Pruritus [Unknown]
  - Abnormal sensation in eye [Unknown]
  - Scab [Unknown]
  - Depression [Not Recovered/Not Resolved]

NARRATIVE: CASE EVENT DATE: 201306
